FAERS Safety Report 20756587 (Version 1)
Quarter: 2022Q2

REPORT INFORMATION
  Report Type: Spontaneous
  Country: US (occurrence: US)
  Receive Date: 20220427
  Receipt Date: 20220427
  Transmission Date: 20220721
  Serious: No
  Sender: FDA-Public Use
  Company Number: US-ALKERMES INC.-ALK-2022-001979

PATIENT
  Age: 45 Year
  Sex: Female

DRUGS (1)
  1. ARISTADA [Suspect]
     Active Substance: ARIPIPRAZOLE LAUROXIL
     Indication: Bipolar disorder
     Dosage: 1064 MILLIGRAM, Q8WK
     Route: 030
     Dates: start: 2021

REACTIONS (8)
  - Off label use [Not Recovered/Not Resolved]
  - Tachyphrenia [Unknown]
  - Euphoric mood [Unknown]
  - Feeling abnormal [Unknown]
  - Coordination abnormal [Unknown]
  - Impaired driving ability [Unknown]
  - Overweight [Unknown]
  - Anxiety [Unknown]

NARRATIVE: CASE EVENT DATE: 20210101
